FAERS Safety Report 10440815 (Version 1)
Quarter: 2014Q3

REPORT INFORMATION
  Report Type: Spontaneous
  Country: US (occurrence: US)
  Receive Date: 20140909
  Receipt Date: 20140909
  Transmission Date: 20150326
  Serious: Yes (Hospitalization)
  Sender: FDA-Public Use
  Company Number: US-AUROBINDO-AUR-APL-2014-09514

PATIENT
  Age: 37 Year
  Sex: Female

DRUGS (2)
  1. VALACICLOVIR 1000MG [Suspect]
     Active Substance: VALACYCLOVIR HYDROCHLORIDE
     Indication: HERPES ZOSTER
     Dosage: 1000 MG, EVERY 8 HOURS
     Route: 065
  2. ACICLOVIR INJECTION [Suspect]
     Active Substance: ACYCLOVIR
     Indication: HERPES ZOSTER
     Route: 042

REACTIONS (9)
  - Asthenia [Recovering/Resolving]
  - Lethargy [Recovering/Resolving]
  - Toxicity to various agents [Recovering/Resolving]
  - Medication error [Recovering/Resolving]
  - Neurotoxicity [Recovering/Resolving]
  - Paraesthesia [Recovering/Resolving]
  - Drug level increased [Recovering/Resolving]
  - Hallucination, visual [Recovered/Resolved]
  - Confusional state [Recovering/Resolving]
